FAERS Safety Report 9977591 (Version 1)
Quarter: 2014Q1

REPORT INFORMATION
  Report Type: Report from Study
  Country: US (occurrence: US)
  Receive Date: 20140306
  Receipt Date: 20140306
  Transmission Date: 20141002
  Serious: No
  Sender: FDA-Public Use
  Company Number: US-ABBVIE-13P-163-1162817-00

PATIENT
  Age: 65 Year
  Sex: Male

DRUGS (5)
  1. HUMIRA [Suspect]
     Indication: CROHN^S DISEASE
     Route: 058
     Dates: start: 200801
  2. LISINOPRIL [Concomitant]
     Indication: HYPERTENSION
  3. MERCAPTOPURINE [Concomitant]
     Indication: CROHN^S DISEASE
  4. SIMVASTATIN [Concomitant]
     Indication: BLOOD CHOLESTEROL INCREASED
  5. ASPIRIN [Concomitant]
     Indication: PRODUCT USED FOR UNKNOWN INDICATION

REACTIONS (5)
  - Stress [Not Recovered/Not Resolved]
  - Fistula [Unknown]
  - Haemorrhage [Unknown]
  - Rectal abscess [Recovered/Resolved]
  - Arthralgia [Recovered/Resolved]
